FAERS Safety Report 9800958 (Version 1)
Quarter: 2014Q1

REPORT INFORMATION
  Report Type: Not Available
  Country: CH (occurrence: CH)
  Receive Date: 20140107
  Receipt Date: 20140107
  Transmission Date: 20141002
  Serious: Yes (Hospitalization)
  Sender: FDA-Public Use
  Company Number: CH-ASTELLAS-2013EU011695

PATIENT
  Age: 61 Year
  Sex: Female

DRUGS (9)
  1. PROGRAF [Suspect]
     Indication: LUNG TRANSPLANT
     Dosage: 2 DF, BID
     Route: 048
     Dates: start: 201002
  2. CERTICAN [Suspect]
     Indication: LUNG TRANSPLANT
     Dosage: 1 MG, BID
     Route: 048
     Dates: start: 20130722
  3. MARCOUMAR [Concomitant]
     Dosage: 3 MG, PRN
     Route: 048
  4. PREDNISONE [Concomitant]
     Indication: LUNG TRANSPLANT
     Dosage: 1 DF, BID
     Route: 048
  5. ESOMEP                             /01479302/ [Concomitant]
     Dosage: 40 MG, UID/QD
     Route: 048
  6. EFEXOR [Concomitant]
     Dosage: 150 MG, UID/QD
     Route: 048
  7. TRIATEC                            /00885601/ [Concomitant]
     Dosage: 1.25 MG, BID
     Route: 048
  8. METOPROLOL [Concomitant]
     Dosage: 25 MG, UID/QD
     Route: 048
  9. NEPHROTRANS [Concomitant]
     Indication: ACIDOSIS
     Dosage: 500 MG, TID
     Route: 048

REACTIONS (2)
  - Nephrosclerosis [Not Recovered/Not Resolved]
  - Renal failure chronic [Not Recovered/Not Resolved]
